FAERS Safety Report 8618945-5 (Version None)
Quarter: 2012Q3

REPORT INFORMATION
  Report Type: 
  Country: None (occurrence: None)
  Receive Date: 20120824
  Receipt Date: 20120820
  Transmission Date: 20120928
  Serious: Yes (Other)
  Sender: FDA-Public Use
  Company Number: PHHY2010CA52022

PATIENT
  Sex: Male

DRUGS (2)
  1. SANDOSTATIN LAR [Suspect]
     Indication: COLON CANCER METASTATIC
     Dosage: 10 MG, EVERY 4 WEEKS
     Route: 030
     Dates: start: 20090224
  2. SANDOSTATIN LAR [Suspect]
     Dosage: 20 MG,  EVERY 4 WEEKS
     Route: 030

REACTIONS (4)
  - BLOOD PRESSURE DIASTOLIC DECREASED [None]
  - TERMINAL STATE [None]
  - HEART RATE DECREASED [None]
  - CHEST PAIN [None]
